FAERS Safety Report 25726950 (Version 3)
Quarter: 2025Q4

REPORT INFORMATION
  Report Type: Report from Study
  Country: US (occurrence: US)
  Receive Date: 20250826
  Receipt Date: 20251017
  Transmission Date: 20260117
  Serious: Yes (Hospitalization, Other)
  Sender: MERCK SHARP & DOHME LLC
  Company Number: US-009507513-2314740

PATIENT
  Sex: Male
  Weight: 45.5 kg

DRUGS (16)
  1. WINREVAIR [Suspect]
     Active Substance: SOTATERCEPT-CSRK
     Indication: Pulmonary arterial hypertension
     Dosage: 0.3 ML, EVERY 3 WEEKS (Q3W)
     Route: 058
     Dates: start: 20250728
  2. WINREVAIR [Suspect]
     Active Substance: SOTATERCEPT-CSRK
     Dosage: 0.3 ML, EVERY 3 WEEKS (Q3W)
     Route: 058
     Dates: start: 2025
  3. WINREVAIR [Suspect]
     Active Substance: SOTATERCEPT-CSRK
  4. WINREVAIR [Suspect]
     Active Substance: SOTATERCEPT-CSRK
  5. UPTRAVI [Concomitant]
     Active Substance: SELEXIPAG
     Dosage: UNK
  6. FUROSEMIDE [Concomitant]
     Active Substance: FUROSEMIDE
     Dosage: UNK
  7. OPSUMIT [Concomitant]
     Active Substance: MACITENTAN
     Dosage: UNK
  8. MULTIVITAMINS TABLET [Concomitant]
     Dosage: UNK
  9. OXCARBAZEPINE [Concomitant]
     Active Substance: OXCARBAZEPINE
     Dosage: UNK
  10. KEPPRA [Concomitant]
     Active Substance: LEVETIRACETAM
     Dosage: UNK
  11. ACETAMINOPHEN [Concomitant]
     Active Substance: ACETAMINOPHEN
     Dosage: UNK
  12. CHOLECALCIFEROL [Concomitant]
     Active Substance: CHOLECALCIFEROL
  13. DIAZEPAM [Concomitant]
     Active Substance: DIAZEPAM
  14. LEVALBUTEROL [Concomitant]
     Active Substance: LEVALBUTEROL
  15. LEVETIRACETAM [Concomitant]
     Active Substance: LEVETIRACETAM
  16. SILDENAFIL [Concomitant]
     Active Substance: SILDENAFIL

REACTIONS (25)
  - Pulmonary haemorrhage [Unknown]
  - Tracheal haemorrhage [Recovering/Resolving]
  - Injection site pain [Unknown]
  - Increased viscosity of upper respiratory secretion [Recovering/Resolving]
  - Respiratory distress [Unknown]
  - Breath sounds abnormal [Recovered/Resolved]
  - Lung consolidation [Unknown]
  - Hospitalisation [Unknown]
  - Clubbing [Not Recovered/Not Resolved]
  - Cough [Unknown]
  - Tracheitis [Unknown]
  - Acute respiratory failure [Unknown]
  - Pleural effusion [Unknown]
  - Anaemia [Unknown]
  - Thrombocytopenia [Unknown]
  - Hyponatraemia [Unknown]
  - Pneumonia [Unknown]
  - Viral infection [Unknown]
  - Wheezing [Unknown]
  - Chronic respiratory disease [Unknown]
  - Pneumothorax [Unknown]
  - Pneumomediastinum [Unknown]
  - Hepatomegaly [Unknown]
  - Blood potassium increased [Unknown]
  - Blood creatinine decreased [Unknown]

NARRATIVE: CASE EVENT DATE: 20250101
